FAERS Safety Report 8289234-6 (Version None)
Quarter: 2012Q2

REPORT INFORMATION
  Report Type: 
  Country: None (occurrence: None)
  Receive Date: 20120417
  Receipt Date: 20120410
  Transmission Date: 20120825
  Serious: Yes (Other)
  Sender: FDA-Public Use
  Company Number: PHHY2011CO96791

PATIENT
  Sex: Female

DRUGS (3)
  1. ENALAPRIL MALEATE [Concomitant]
     Dosage: 5MG PER DAY
  2. LEVOTHYROXINE SODIUM [Concomitant]
     Dosage: 100 MCG PER DAY
  3. SANDOSTATIN LAR [Suspect]
     Indication: ACROMEGALY
     Dosage: 20 MG, UNK
     Route: 030
     Dates: start: 20110201

REACTIONS (4)
  - SYNCOPE [None]
  - NAUSEA [None]
  - SPEECH DISORDER [None]
  - TRANSIENT ISCHAEMIC ATTACK [None]
